FAERS Safety Report 23415428 (Version 4)
Quarter: 2025Q1

REPORT INFORMATION
  Report Type: Spontaneous
  Country: US (occurrence: US)
  Receive Date: 20240118
  Receipt Date: 20250320
  Transmission Date: 20250409
  Serious: Yes (Hospitalization, Other)
  Sender: SANOFI AVENTIS
  Company Number: US-SA-SAC20240117000189

PATIENT
  Age: 74 Year
  Sex: Female
  Weight: 45.45 kg

DRUGS (7)
  1. DUPIXENT [Suspect]
     Active Substance: DUPILUMAB
     Indication: Dermatitis atopic
     Dosage: 300 MG, QOW
     Route: 058
     Dates: start: 2022
  2. DUPIXENT [Suspect]
     Active Substance: DUPILUMAB
     Dosage: 300 MG, QOW
     Route: 058
     Dates: start: 202303
  3. DUPIXENT [Suspect]
     Active Substance: DUPILUMAB
     Dosage: 300 MG, QOW
     Route: 058
  4. ALPRAZOLAM [Concomitant]
     Active Substance: ALPRAZOLAM
  5. TIZANIDINE HYDROCHLORIDE [Concomitant]
     Active Substance: TIZANIDINE HYDROCHLORIDE
  6. LIDOCAINE [Concomitant]
     Active Substance: LIDOCAINE
  7. VENLAFAXINE HCL [Concomitant]
     Active Substance: VENLAFAXINE HYDROCHLORIDE

REACTIONS (17)
  - Breast cancer [Not Recovered/Not Resolved]
  - Fall [Unknown]
  - Back injury [Unknown]
  - Transient ischaemic attack [Unknown]
  - Crohn^s disease [Unknown]
  - Depression [Unknown]
  - Limb injury [Unknown]
  - Chest pain [Unknown]
  - Contusion [Unknown]
  - Night blindness [Not Recovered/Not Resolved]
  - Large intestine infection [Unknown]
  - Platelet count decreased [Unknown]
  - White blood cell count decreased [Unknown]
  - Diarrhoea [Unknown]
  - Dry eye [Not Recovered/Not Resolved]
  - Eye pruritus [Not Recovered/Not Resolved]
  - Incorrect dose administered [Unknown]

NARRATIVE: CASE EVENT DATE: 20220101
